FAERS Safety Report 16003899 (Version 4)
Quarter: 2019Q2

REPORT INFORMATION
  Report Type: Spontaneous
  Country: ES (occurrence: ES)
  Receive Date: 20190226
  Receipt Date: 20190405
  Transmission Date: 20190711
  Serious: Yes (Hospitalization, Other)
  Sender: FDA-Public Use
  Company Number: ES-009507513-1902ESP010076

PATIENT
  Age: 60 Year
  Sex: Male
  Weight: 121 kg

DRUGS (3)
  1. KEYTRUDA [Suspect]
     Active Substance: PEMBROLIZUMAB
     Indication: NON-SMALL CELL LUNG CANCER METASTATIC
     Dosage: 200 MILLIGRAM, Q3W
     Route: 042
     Dates: start: 20181002, end: 20181120
  2. KEYTRUDA [Suspect]
     Active Substance: PEMBROLIZUMAB
     Dosage: 200 MILLIGRAM, Q3W
     Route: 042
     Dates: start: 20190308, end: 20190308
  3. KEYTRUDA [Suspect]
     Active Substance: PEMBROLIZUMAB
     Dosage: 200 MILLIGRAM, Q3W
     Route: 042
     Dates: start: 20181220, end: 20190201

REACTIONS (7)
  - Immune-mediated adverse reaction [Recovered/Resolved]
  - Tumour pseudoprogression [Unknown]
  - Intestinal obstruction [Not Recovered/Not Resolved]
  - Immune-mediated adverse reaction [Recovered/Resolved]
  - Pneumonitis [Recovered/Resolved]
  - Pneumonitis [Recovered/Resolved]
  - Small intestinal perforation [Unknown]

NARRATIVE: CASE EVENT DATE: 20181120
